FAERS Safety Report 15928545 (Version 1)
Quarter: 2019Q1

REPORT INFORMATION
  Report Type: Spontaneous
  Country: FR (occurrence: FR)
  Receive Date: 20190206
  Receipt Date: 20190206
  Transmission Date: 20190417
  Serious: Yes (Hospitalization, Other)
  Sender: FDA-Public Use
  Company Number: FR-BRISTOL-MYERS SQUIBB COMPANY-BMS-2019-010691

PATIENT
  Age: 76 Year
  Sex: Female
  Weight: 67.7 kg

DRUGS (7)
  1. DAFALGAN CODEINE [Suspect]
     Active Substance: ACETAMINOPHEN\CODEINE PHOSPHATE
     Indication: ANALGESIC INTERVENTION SUPPORTIVE THERAPY
     Dosage: 2 DF=2 ^T^, DRUG INTERVAL DOSAGE UNIT NUMBER ^1 DAY^
     Route: 048
     Dates: end: 20181225
  2. ELIQUIS [Suspect]
     Active Substance: APIXABAN
     Indication: CEREBROVASCULAR ACCIDENT PROPHYLAXIS
     Route: 048
  3. SIFROL [Concomitant]
     Active Substance: PRAMIPEXOLE
     Indication: RESTLESS LEGS SYNDROME
     Dosage: 0.5 DF= 0.5 ^T^, DRUG INTERVAL DOSAGE UNTI NUMBER ^1 DAY^
     Route: 048
     Dates: end: 20181225
  4. CACIT VITAMINE D3 [Suspect]
     Active Substance: CALCIUM CARBONATE\CHOLECALCIFEROL
     Indication: HYPOVITAMINOSIS
     Dosage: 3 DF= 3 ^T^, UNK
     Route: 048
  5. IRBESARTAN. [Suspect]
     Active Substance: IRBESARTAN
     Indication: HYPERTENSION
     Dosage: 300 MG, DRUG INTERVAL DOSAGE UNTI NUMBER ^1 DAY^
     Route: 048
     Dates: end: 20181225
  6. VAXIGRIPTETRA [Suspect]
     Active Substance: INFLUENZA VIRUS VACCINE QUADRIVALENT TYPE A+B
     Indication: INFLUENZA IMMUNISATION
     Dosage: 1 DF= 1 ^T^, UNK
     Route: 065
  7. TRANSULOSE [Suspect]
     Active Substance: LACTULOSE\MINERAL OIL\PARAFFIN
     Indication: CONSTIPATION
     Dosage: 1 DF=1 ^T^, DRUG INTERVAL DOSAGE UNTI NUMBER ^1 DAY^
     Route: 048
     Dates: end: 20181225

REACTIONS (2)
  - Meningorrhagia [Recovered/Resolved]
  - Thrombocytopenia [Recovering/Resolving]

NARRATIVE: CASE EVENT DATE: 20181206
